FAERS Safety Report 11285270 (Version 2)
Quarter: 2020Q3

REPORT INFORMATION
  Report Type: Report from Study
  Country: DE (occurrence: DE)
  Receive Date: 20150720
  Receipt Date: 20150811
  Transmission Date: 20201105
  Serious: Yes (Death, Hospitalization)
  Sender: FDA-Public Use
  Company Number: PHHO2015DE009317

PATIENT
  Age: 60 Year
  Sex: Female

DRUGS (6)
  1. DAPTOMYCIN. [Suspect]
     Active Substance: DAPTOMYCIN
     Indication: PRODUCT USED FOR UNKNOWN INDICATION
     Dosage: UNK
     Route: 065
  2. CASPOFUNGIN [Suspect]
     Active Substance: CASPOFUNGIN
     Indication: PRODUCT USED FOR UNKNOWN INDICATION
     Dosage: UNK
     Route: 065
  3. MEROPENEM. [Suspect]
     Active Substance: MEROPENEM
     Indication: PRODUCT USED FOR UNKNOWN INDICATION
     Dosage: UNK
     Route: 065
  4. ANTIBIOTICS [Concomitant]
     Active Substance: UNSPECIFIED INGREDIENT
     Indication: PRODUCT USED FOR UNKNOWN INDICATION
     Route: 065
  5. PASIREOTIDE. [Suspect]
     Active Substance: PASIREOTIDE
     Indication: NEUROENDOCRINE TUMOUR
     Dosage: 60 MG
     Route: 030
     Dates: start: 20130716, end: 20150505
  6. AFINITOR [Suspect]
     Active Substance: EVEROLIMUS
     Dosage: 5 MG
     Route: 048
     Dates: start: 20131008, end: 20150521

REACTIONS (8)
  - Fungal sepsis [Fatal]
  - Rash [Fatal]
  - Acute kidney injury [Fatal]
  - Acute hepatic failure [Fatal]
  - Pneumothorax [Fatal]
  - General physical health deterioration [Fatal]
  - Cardiomyopathy [Fatal]
  - Pleural effusion [Fatal]

NARRATIVE: CASE EVENT DATE: 20150516
